FAERS Safety Report 22376424 (Version 2)
Quarter: 2023Q2

REPORT INFORMATION
  Report Type: Report from Study
  Country: US (occurrence: US)
  Receive Date: 20230527
  Receipt Date: 20230609
  Transmission Date: 20230721
  Serious: Yes (Disabling, Other)
  Sender: FDA-Public Use
  Company Number: US-AMGEN-USASL2023085189

PATIENT
  Age: 80 Year
  Sex: Female

DRUGS (1)
  1. XGEVA [Suspect]
     Active Substance: DENOSUMAB
     Indication: Breast cancer
     Dosage: UNK, QMO
     Route: 065
     Dates: end: 2023

REACTIONS (3)
  - Deafness [Unknown]
  - Osteonecrosis of jaw [Not Recovered/Not Resolved]
  - Tooth infection [Unknown]
